FAERS Safety Report 9837158 (Version 1)
Quarter: 2013Q4

REPORT INFORMATION
  Report Type: Spontaneous
  Country: US (occurrence: None)
  Receive Date: 20131205
  Receipt Date: 20131205
  Transmission Date: 20140711
  Serious: Yes (Other)
  Sender: FDA-Public Use
  Company Number: 163-POMAL-13091703

PATIENT
  Age: 49 Year
  Sex: Female

DRUGS (3)
  1. POMALYST [Suspect]
     Indication: PLASMA CELL MYELOMA
     Route: 048
     Dates: start: 201308, end: 20130909
  2. CARFILZOMIB (CARFILZOMIB) [Concomitant]
  3. DEX (DEXTROMETHOPHAN HYDROBROMIDE) [Concomitant]

REACTIONS (3)
  - Drug intolerance [None]
  - Rash [None]
  - Dyspnoea [None]
